FAERS Safety Report 7449468-7 (Version None)
Quarter: 2011Q2

REPORT INFORMATION
  Report Type: 
  Country: None (occurrence: None)
  Receive Date: 20110502
  Receipt Date: 20110331
  Transmission Date: 20111010
  Serious: Yes (Hospitalization, Other)
  Sender: FDA-Public Use
  Company Number: US-BAYER-201011122NA

PATIENT
  Age: 32 Year
  Sex: Female
  Weight: 74.83 kg

DRUGS (6)
  1. THYROID MEDICATIONS [Concomitant]
  2. ANTIBIOTICS [Concomitant]
  3. YAZ [Suspect]
     Indication: PRODUCT USED FOR UNKNOWN INDICATION
     Dosage: UNK
     Dates: start: 20070208, end: 20080724
  4. DIURETICS [Concomitant]
  5. NSAID'S [Concomitant]
  6. MIGRAINE MEDICATION [Concomitant]

REACTIONS (5)
  - CHOLECYSTECTOMY [None]
  - EMOTIONAL DISTRESS [None]
  - CHOLELITHIASIS [None]
  - PULMONARY EMBOLISM [None]
  - PARANOIA [None]
